FAERS Safety Report 7225721-7 (Version None)
Quarter: 2011Q1

REPORT INFORMATION
  Report Type: 
  Country: None (occurrence: None)
  Receive Date: 20110110
  Receipt Date: 20110110
  Transmission Date: 20110831
  Serious: Yes (Other)
  Sender: FDA-Public Use
  Company Number: None

PATIENT
  Sex: Female
  Weight: 58.514 kg

DRUGS (2)
  1. LEVOTHYROXINE SODIUM [Suspect]
     Indication: HYPOTHYROIDISM
     Dosage: 100 MCG TABLET 5 DAYS A WEEK PO
     Route: 048
     Dates: start: 20090324, end: 20101231
  2. LEVOTHYROXINE SODIUM [Suspect]
     Indication: HYPOTHYROIDISM
     Dosage: 88 MCG TABLET 2 DAYS A WEEK PO
     Route: 048
     Dates: start: 20080324, end: 20101231

REACTIONS (2)
  - FATIGUE [None]
  - BLOOD THYROID STIMULATING HORMONE ABNORMAL [None]
